FAERS Safety Report 14459695 (Version 2)
Quarter: 2018Q1

REPORT INFORMATION
  Report Type: Spontaneous
  Country: JP (occurrence: JP)
  Receive Date: 20180130
  Receipt Date: 20180214
  Transmission Date: 20180509
  Serious: No
  Sender: FDA-Public Use
  Company Number: JP-GLAXOSMITHKLINE-JP2018JPN003957

PATIENT
  Age: 89 Year
  Sex: Male
  Weight: 47 kg

DRUGS (15)
  1. LAMICTAL [Suspect]
     Active Substance: LAMOTRIGINE
     Dosage: 200 MG, 1D
     Route: 048
     Dates: start: 20180105, end: 20180108
  2. OLANZAPINE. [Concomitant]
     Active Substance: OLANZAPINE
     Dosage: 10 MG, 1D
     Dates: start: 20171214, end: 20171228
  3. LANSOPRAZOLE-OD [Concomitant]
     Active Substance: LANSOPRAZOLE
     Dosage: 15 MG, 1D
     Dates: start: 20171128
  4. LAMICTAL [Suspect]
     Active Substance: LAMOTRIGINE
     Dosage: 150 MG, 1D
     Route: 048
     Dates: start: 20171229, end: 20180104
  5. OLANZAPINE. [Concomitant]
     Active Substance: OLANZAPINE
     Dosage: 1.25 MG, 1D
     Dates: start: 20171111, end: 20171114
  6. OLANZAPINE. [Concomitant]
     Active Substance: OLANZAPINE
     Dosage: 5 MG, 1D
     Dates: start: 20171115, end: 20171213
  7. LAMICTAL [Suspect]
     Active Substance: LAMOTRIGINE
     Dosage: 50 MG, 1D
     Route: 048
     Dates: start: 20171130, end: 20171213
  8. OLANZAPINE. [Concomitant]
     Active Substance: OLANZAPINE
     Dosage: 2.5 MG, 1D
     Dates: start: 20171118, end: 20171121
  9. LUNESTA TABLETS [Concomitant]
     Dosage: 2 MG, 1D
     Dates: start: 20171115
  10. BIO-THREE COMBINATION TABLETS [Concomitant]
     Dosage: 2 DF, 1D
     Dates: start: 20171115
  11. LAMICTAL [Suspect]
     Active Substance: LAMOTRIGINE
     Indication: BIPOLAR DISORDER
     Dosage: 25 MG, 1D
     Route: 048
     Dates: start: 20171111, end: 20171129
  12. LAMICTAL [Suspect]
     Active Substance: LAMOTRIGINE
     Dosage: 100 MG, 1D
     Route: 048
     Dates: start: 20171214, end: 20171228
  13. PRAVASTATIN SODIUM. [Concomitant]
     Active Substance: PRAVASTATIN SODIUM
     Dosage: 5 MG, 1D
     Dates: start: 20171115, end: 20171122
  14. MAGNESIUM OXIDE TABLET [Concomitant]
     Dosage: 750 MG, 1D
     Dates: start: 20171115
  15. VASOLAN [Concomitant]
     Active Substance: VERAPAMIL HYDROCHLORIDE
     Dosage: 80 MG, 1D
     Dates: start: 20171115

REACTIONS (5)
  - Pruritus [Recovered/Resolved]
  - Eczema [Recovering/Resolving]
  - Rash [Recovered/Resolved]
  - Generalised erythema [Recovering/Resolving]
  - Erythema [Recovering/Resolving]

NARRATIVE: CASE EVENT DATE: 20171206
